FAERS Safety Report 24907693 (Version 2)
Quarter: 2025Q2

REPORT INFORMATION
  Report Type: Spontaneous
  Country: CA (occurrence: CA)
  Receive Date: 20250131
  Receipt Date: 20250625
  Transmission Date: 20250717
  Serious: Yes (Hospitalization)
  Sender: NOVO NORDISK
  Company Number: CA-NOVOPROD-1355302

PATIENT
  Age: 8 Year
  Sex: Male

DRUGS (4)
  1. NORDITROPIN [Suspect]
     Active Substance: SOMATROPIN
     Indication: Growth hormone deficiency
     Route: 058
  2. SYNTHROID [Concomitant]
     Active Substance: LEVOTHYROXINE SODIUM
  3. ACETAZOLAMIDE [Concomitant]
     Active Substance: ACETAZOLAMIDE
  4. DESMOPRESSIN [Concomitant]
     Active Substance: DESMOPRESSIN

REACTIONS (3)
  - Papilloedema [Recovering/Resolving]
  - Intracranial pressure increased [Recovering/Resolving]
  - Headache [Recovering/Resolving]
